FAERS Safety Report 14330674 (Version 1)
Quarter: 2017Q4

REPORT INFORMATION
  Report Type: Spontaneous
  Country: IN (occurrence: IN)
  Receive Date: 20171228
  Receipt Date: 20171228
  Transmission Date: 20180321
  Serious: Yes (Congenital Anomaly, Other)
  Sender: FDA-Public Use
  Company Number: IN-ALEMBIC PHARMACUETICALS LIMITED-2017SCAL001022

PATIENT

DRUGS (3)
  1. SERTRALINE [Suspect]
     Active Substance: SERTRALINE HYDROCHLORIDE
     Indication: PRODUCT USED FOR UNKNOWN INDICATION
     Dosage: 150 MG, QD
     Route: 065
  2. OLANZAPINE. [Suspect]
     Active Substance: OLANZAPINE
     Indication: PRODUCT USED FOR UNKNOWN INDICATION
     Dosage: 2.5 MG, QD
     Route: 065
  3. FLUOXETINE [Suspect]
     Active Substance: FLUOXETINE HYDROCHLORIDE
     Indication: PRODUCT USED FOR UNKNOWN INDICATION
     Dosage: UNK
     Route: 065

REACTIONS (16)
  - Micrognathia [Unknown]
  - Single umbilical artery [Unknown]
  - Adactyly [Unknown]
  - Neck deformity [Unknown]
  - Heart rate decreased [Unknown]
  - Wrist deformity [Unknown]
  - Cyanosis neonatal [Unknown]
  - Areflexia [Unknown]
  - Foetal exposure during pregnancy [Unknown]
  - Limb malformation [Unknown]
  - Subgaleal haematoma [Unknown]
  - Congenital choroid plexus cyst [Unknown]
  - Hypokinesia neonatal [Unknown]
  - Dyspnoea [Unknown]
  - Talipes [Unknown]
  - Oedema [Unknown]
